FAERS Safety Report 19292403 (Version 1)
Quarter: 2021Q2

REPORT INFORMATION
  Report Type: Other
  Country: AR (occurrence: AR)
  Receive Date: 20210524
  Receipt Date: 20210524
  Transmission Date: 20210717
  Serious: Yes (Death, Other)
  Sender: FDA-Public Use
  Company Number: AR-ROCHE-2772583

PATIENT
  Age: 71 Year
  Sex: Female

DRUGS (3)
  1. XOLAIR [Suspect]
     Active Substance: OMALIZUMAB
     Indication: ASTHMA
     Route: 058
     Dates: start: 201010, end: 201503
  2. XOLAIR [Suspect]
     Active Substance: OMALIZUMAB
     Route: 058
     Dates: start: 20101027
  3. XOLAIR [Suspect]
     Active Substance: OMALIZUMAB
     Route: 058
     Dates: start: 202003

REACTIONS (23)
  - Nervousness [Unknown]
  - Asthenia [Recovered/Resolved]
  - Asthma [Recovered/Resolved]
  - Asymptomatic COVID-19 [Unknown]
  - Nosocomial infection [Unknown]
  - Hip fracture [Unknown]
  - Bronchitis [Unknown]
  - Productive cough [Unknown]
  - Sensitivity to weather change [Unknown]
  - Pneumonia [Recovered/Resolved]
  - Infective exacerbation of bronchiectasis [Recovered/Resolved]
  - Discomfort [Unknown]
  - Dysphonia [Unknown]
  - Malaise [Unknown]
  - Asthmatic crisis [Recovered/Resolved]
  - Humerus fracture [Recovering/Resolving]
  - Pain [Unknown]
  - Viral infection [Unknown]
  - Death [Fatal]
  - Anxiety [Unknown]
  - Facial bones fracture [Recovered/Resolved]
  - Pyrexia [Recovered/Resolved]
  - Choking [Unknown]

NARRATIVE: CASE EVENT DATE: 201402
